FAERS Safety Report 17161569 (Version 1)
Quarter: 2019Q4

REPORT INFORMATION
  Report Type: Spontaneous
  Country: US (occurrence: US)
  Receive Date: 20191217
  Receipt Date: 20191217
  Transmission Date: 20200122
  Serious: Yes (Hospitalization)
  Sender: FDA-Public Use
  Company Number: US-ANIPHARMA-2019-US-022644

PATIENT
  Age: 58 Year
  Sex: Female

DRUGS (4)
  1. CHLORTHALIDONE. [Concomitant]
     Active Substance: CHLORTHALIDONE
     Dosage: 12.5 MG DAILY
  2. CALCITRIOL. [Concomitant]
     Active Substance: CALCITRIOL
     Dosage: 0.5 MCG DAILY
  3. LANSOPRAZOLE (NON-SPECIFIC) [Suspect]
     Active Substance: LANSOPRAZOLE
     Indication: DYSPEPSIA
  4. UNSPECIFIED HISTAMINE 2 RECEPTOR BLOCKER [Suspect]
     Active Substance: UNSPECIFIED INGREDIENT
     Indication: DYSPEPSIA

REACTIONS (2)
  - Hypocalcaemia [Unknown]
  - Tetany [Recovered/Resolved]
